FAERS Safety Report 13322124 (Version 1)
Quarter: 2017Q1

REPORT INFORMATION
  Report Type: Spontaneous
  Country: GB (occurrence: GB)
  Receive Date: 20170310
  Receipt Date: 20170310
  Transmission Date: 20170428
  Serious: Yes (Other)
  Sender: FDA-Public Use
  Company Number: GB-AMGEN-GBRSP2017034319

PATIENT
  Sex: Female

DRUGS (1)
  1. ARANESP [Suspect]
     Active Substance: DARBEPOETIN ALFA
     Indication: RENAL DISORDER
     Dosage: 20 MUG, UNK
     Route: 065
     Dates: start: 2016

REACTIONS (3)
  - Diabetes mellitus [Unknown]
  - Drug dose omission [Unknown]
  - Injection site pain [Unknown]
